FAERS Safety Report 4442432-1 (Version None)
Quarter: 2004Q3

REPORT INFORMATION
  Report Type: 
  Country: None (occurrence: None)
  Receive Date: 20040903
  Receipt Date: 20040729
  Transmission Date: 20050211
  Serious: Yes (Other)
  Sender: FDA-Public Use
  Company Number: 2004UW16209

PATIENT
  Age: 73 Year
  Sex: Female
  Weight: 81.6475 kg

DRUGS (6)
  1. CRESTOR [Suspect]
     Indication: HYPERCHOLESTEROLAEMIA
     Dates: start: 20040301, end: 20040727
  2. DIOVAN [Concomitant]
  3. MODURETIC 5-50 [Concomitant]
  4. FOLTX [Concomitant]
  5. VITAMIN C [Concomitant]
  6. ECOTRIN [Concomitant]

REACTIONS (3)
  - ASTHENIA [None]
  - MUSCLE FATIGUE [None]
  - MUSCULOSKELETAL STIFFNESS [None]
